FAERS Safety Report 9475683 (Version 1)
Quarter: 2013Q3

REPORT INFORMATION
  Report Type: Report from Study
  Country: US (occurrence: US)
  Receive Date: 20130826
  Receipt Date: 20130826
  Transmission Date: 20140515
  Serious: Yes (Death)
  Sender: FDA-Public Use
  Company Number: PHEH2013US017968

PATIENT
  Age: 84 Year
  Sex: Female

DRUGS (3)
  1. GLEEVEC [Suspect]
     Indication: CHRONIC MYELOID LEUKAEMIA
     Dosage: 300 MG, DAILY
     Route: 048
     Dates: start: 20130125
  2. PROCRIT//ERYTHROPOIETIN [Concomitant]
     Dosage: UNK
  3. EDARBYCLOR [Concomitant]
     Dosage: UNK

REACTIONS (1)
  - Cardiac valve disease [Fatal]
